FAERS Safety Report 6524272-2 (Version None)
Quarter: 2009Q4

REPORT INFORMATION
  Report Type: 
  Country: None (occurrence: None)
  Receive Date: 20091230
  Receipt Date: 20091230
  Transmission Date: 20100525
  Serious: Yes (Hospitalization)
  Sender: FDA-Public Use
  Company Number: None

PATIENT
  Sex: Female
  Weight: 73 kg

DRUGS (12)
  1. ASPIRIN [Suspect]
     Indication: THROMBOSIS PROPHYLAXIS
     Dosage: 81MG PO DAILY
     Route: 048
  2. PIOGLITAZONE [Concomitant]
  3. DARBEPOETIN ALFA [Concomitant]
  4. ASPIRIN [Concomitant]
  5. CARVEDILOL [Concomitant]
  6. PREDNISONE [Concomitant]
  7. LOMOTIL [Concomitant]
  8. GLIPIZIDE [Concomitant]
  9. OXYCODONE HCL AND ACETAMINOPHEN [Concomitant]
  10. THALIDOMIDE [Concomitant]
  11. LANSOPRAZOLE [Concomitant]
  12. LISINOPRIL [Concomitant]

REACTIONS (2)
  - GASTRIC HAEMORRHAGE [None]
  - HAEMOGLOBIN DECREASED [None]
